FAERS Safety Report 8764981 (Version 2)
Quarter: 2012Q4

REPORT INFORMATION
  Report Type: Report from Study
  Country: JP (occurrence: JP)
  Receive Date: 20120903
  Receipt Date: 20121017
  Transmission Date: 20130627
  Serious: Yes (Other)
  Sender: FDA-Public Use
  Company Number: JP-009507513-2012SP010348

PATIENT
  Age: 63 Year
  Sex: Male
  Weight: 45 kg

DRUGS (20)
  1. PEGINTRON [Suspect]
     Indication: HEPATITIS C
     Dosage: 1.5 ?g/kg, QW
     Route: 058
     Dates: start: 20120210
  2. REBETOL [Suspect]
     Indication: HEPATITIS C
     Dosage: 600 mg, QD
     Route: 048
     Dates: start: 20120210, end: 20120213
  3. REBETOL [Suspect]
     Dosage: 600 mg, QD
     Route: 048
     Dates: start: 20120227, end: 20120318
  4. REBETOL [Suspect]
     Dosage: 400 mg, QD
     Route: 048
     Dates: start: 20120319, end: 20120416
  5. REBETOL [Suspect]
     Dosage: 600 mg, QD
     Route: 048
     Dates: start: 20120417, end: 20120521
  6. REBETOL [Suspect]
     Dosage: 400 mg, QD
     Route: 048
     Dates: start: 20120522, end: 20120528
  7. REBETOL [Suspect]
     Dosage: 200 mg, qd
     Route: 048
     Dates: start: 20120604, end: 20120610
  8. REBETOL [Suspect]
     Dosage: 400 mg, qd
     Route: 048
     Dates: start: 20120611, end: 20120617
  9. REBETOL [Suspect]
     Dosage: 600 mg, qd
     Route: 048
     Dates: start: 20120618
  10. TELAVIC [Suspect]
     Indication: HEPATITIS C
     Dosage: Dose: 2250 mg, cumulative dose: 4500 mg
     Route: 048
     Dates: start: 20120210, end: 20120212
  11. TELAVIC [Suspect]
     Dosage: Dose: 1500mg,  cumulative dose: 4500 mg
     Route: 048
     Dates: start: 20120213, end: 20120213
  12. TELAVIC [Suspect]
     Dosage: cumulative dose: 4500 mg
     Route: 048
     Dates: start: 20120305, end: 20120507
  13. URSO [Concomitant]
     Indication: HEPATITIS C
     Dosage: 600 mg, qd
     Route: 048
     Dates: end: 20120603
  14. URSO [Concomitant]
     Dosage: 300 mg, qd
     Route: 048
     Dates: start: 20120611, end: 20120729
  15. FERROMIA [Concomitant]
     Indication: IRON DEFICIENCY ANAEMIA
     Dosage: UPDATE (07JUN2012): FREQUENCY
     Route: 048
  16. DERMOVATE [Concomitant]
     Indication: PROPHYLAXIS
     Dosage: Formulation: Oit
     Route: 061
     Dates: start: 20120212
  17. PROHEPARUM [Concomitant]
     Indication: HEPATITIS C
     Dosage: UPDATE (07JUN2012)
     Route: 048
     Dates: start: 20120227, end: 20120603
  18. PROHEPARUM [Concomitant]
     Dosage: 3 DF, qd
     Route: 048
     Dates: start: 20120611, end: 20120729
  19. LEBARAMINE [Concomitant]
     Indication: HEPATITIS C
     Dosage: Formulation: ENT
     Route: 048
     Dates: end: 20120226
  20. PRIMPERAN [Concomitant]
     Indication: NAUSEA
     Dosage: Dose: Daily dose unknown, prn
     Dates: start: 20120213, end: 20120214

REACTIONS (4)
  - Anaemia [Not Recovered/Not Resolved]
  - Decreased appetite [Recovering/Resolving]
  - Dehydration [Recovering/Resolving]
  - Renal failure [Recovered/Resolved]
